FAERS Safety Report 15322385 (Version 1)
Quarter: 2018Q3

REPORT INFORMATION
  Report Type: Spontaneous
  Country: NL (occurrence: NL)
  Receive Date: 20180827
  Receipt Date: 20180827
  Transmission Date: 20181010
  Serious: Yes (Other)
  Sender: FDA-Public Use
  Company Number: PHHY2018NL076986

PATIENT
  Age: 41 Year
  Sex: Female

DRUGS (1)
  1. COSENTYX [Suspect]
     Active Substance: SECUKINUMAB
     Indication: PSORIASIS
     Dosage: 300 MG, BIW
     Route: 065
     Dates: start: 20180202, end: 20180511

REACTIONS (4)
  - Conjunctivitis [Recovering/Resolving]
  - Anaphylactic reaction [Recovered/Resolved]
  - Deep vein thrombosis [Recovering/Resolving]
  - Oral fungal infection [Recovering/Resolving]

NARRATIVE: CASE EVENT DATE: 20180310
